FAERS Safety Report 12538179 (Version 1)
Quarter: 2016Q3

REPORT INFORMATION
  Report Type: Report from Study
  Country: BR (occurrence: BR)
  Receive Date: 20160707
  Receipt Date: 20160707
  Transmission Date: 20161109
  Serious: Yes (Other)
  Sender: FDA-Public Use
  Company Number: ALCN2016BR004559

PATIENT
  Age: 68 Year
  Sex: Male
  Weight: 82 kg

DRUGS (4)
  1. ATROPINE. [Concomitant]
     Active Substance: ATROPINE
     Indication: POSTOPERATIVE CARE
     Dosage: UNK
     Route: 047
  2. ZYPRED [Concomitant]
     Active Substance: GATIFLOXACIN\PREDNISOLONE ACETATE
     Indication: POSTOPERATIVE CARE
     Route: 047
  3. AZORGA [Suspect]
     Active Substance: BRINZOLAMIDE\TIMOLOL MALEATE
     Indication: INTRAOCULAR PRESSURE INCREASED
     Dosage: 1 GTT, BID
     Route: 047
  4. TRAVATAN Z [Suspect]
     Active Substance: TRAVOPROST
     Indication: GLAUCOMA
     Dosage: 1 GTT, BID
     Route: 047

REACTIONS (1)
  - Glaucoma [Recovering/Resolving]

NARRATIVE: CASE EVENT DATE: 20160616
